FAERS Safety Report 24593513 (Version 5)
Quarter: 2025Q1

REPORT INFORMATION
  Report Type: Spontaneous
  Country: JP (occurrence: JP)
  Receive Date: 20241108
  Receipt Date: 20250307
  Transmission Date: 20250409
  Serious: Yes (Death, Life-Threatening)
  Sender: VERICEL
  Company Number: JP-VERICEL-JP-VCEL-24-000389

PATIENT
  Age: 62 Year
  Sex: Female
  Weight: 56.6 kg

DRUGS (12)
  1. BROMELAINS [Suspect]
     Active Substance: BROMELAINS
     Indication: Burns second degree
     Dosage: 1 DOSAGE FORM, Q12H
     Route: 061
     Dates: start: 20240927, end: 20240927
  2. BROMELAINS [Suspect]
     Active Substance: BROMELAINS
     Indication: Burns third degree
     Dosage: 1 DOSAGE FORM, Q12H
     Route: 061
     Dates: start: 20240928, end: 20240928
  3. FENTANYL CITRATE [Concomitant]
     Active Substance: FENTANYL CITRATE
     Indication: Pain management
     Dosage: UNK, QD
     Route: 042
     Dates: end: 20240930
  4. NOREPINEPHRINE BITARTRATE [Concomitant]
     Active Substance: NOREPINEPHRINE BITARTRATE
     Indication: Blood pressure management
     Dosage: UNK, QD
     Route: 042
     Dates: end: 20240930
  5. PROPOFOL [Concomitant]
     Active Substance: PROPOFOL
     Indication: Pain management
     Dosage: UNK, QD
     Route: 042
     Dates: end: 20240930
  6. ALBUMINAR [Concomitant]
     Active Substance: ALBUMIN HUMAN
     Indication: Blood pressure management
     Dosage: UNK
     Route: 042
     Dates: end: 20240930
  7. CALCIUM CHLORIDE\POTASSIUM CHLORIDE\SODIUM ACETATE\SODIUM CHLORIDE [Concomitant]
     Active Substance: CALCIUM CHLORIDE\POTASSIUM CHLORIDE\SODIUM ACETATE\SODIUM CHLORIDE
     Indication: Blood pressure management
     Dosage: UNK, QD
     Route: 042
     Dates: end: 20240930
  8. DIETARY SUPPLEMENT\PROBIOTICS [Concomitant]
     Active Substance: DIETARY SUPPLEMENT\PROBIOTICS NOS
     Indication: Blood pressure management
     Dosage: 3 GRAM, 1 G/8 HOURS
     Route: 048
     Dates: end: 20240930
  9. MIYA-BM [Concomitant]
     Active Substance: CLOSTRIDIUM BUTYRICUM SPORES STRAIN M-55
     Indication: Blood pressure management
     Dosage: 3 3 GRAM, 1 G/8 HOURS
     Route: 048
     Dates: end: 20240930
  10. ACOALAN [Concomitant]
     Indication: Disseminated intravascular coagulation
     Dosage: 1800 DOSAGE FORM, 1800 DIULTION FACTORQD
     Route: 042
     Dates: end: 20240930
  11. MAGNESIUM SULFATE [Concomitant]
     Active Substance: MAGNESIUM SULFATE
     Indication: Mineral supplementation
     Route: 042
     Dates: end: 20240930
  12. PITRESSIN [Concomitant]
     Active Substance: VASOPRESSIN
     Indication: Blood pressure management
     Dosage: UNK, QD
     Route: 042
     Dates: start: 20240928, end: 20240930

REACTIONS (4)
  - Multiple organ dysfunction syndrome [Fatal]
  - Coagulopathy [Fatal]
  - Application site haemorrhage [Recovering/Resolving]
  - Septic shock [Fatal]

NARRATIVE: CASE EVENT DATE: 20240927
